FAERS Safety Report 9553463 (Version 1)
Quarter: 2013Q3

REPORT INFORMATION
  Report Type: Spontaneous
  Country: US (occurrence: US)
  Receive Date: 20130925
  Receipt Date: 20130925
  Transmission Date: 20140515
  Serious: Yes (Other)
  Sender: FDA-Public Use
  Company Number: US-FRI-1000048992

PATIENT
  Age: 21 Year
  Sex: Male

DRUGS (2)
  1. VIIBRYD [Suspect]
     Dosage: 10 MG
  2. VIIBRYD [Suspect]
     Dosage: 20 MG

REACTIONS (1)
  - Suicidal ideation [Recovered/Resolved]
